FAERS Safety Report 4718559-3 (Version None)
Quarter: 2005Q3

REPORT INFORMATION
  Report Type: 
  Country: None (occurrence: None)
  Receive Date: 20050720
  Receipt Date: 20050624
  Transmission Date: 20060218
  Serious: Yes (Death)
  Sender: FDA-Public Use
  Company Number: 200511869JP

PATIENT
  Age: 65 Year
  Sex: Male
  Weight: 71 kg

DRUGS (11)
  1. TAXOTERE [Suspect]
     Indication: OESOPHAGEAL CARCINOMA
     Route: 041
     Dates: start: 20050222, end: 20050405
  2. RADIATION THERAPY [Suspect]
     Indication: OESOPHAGEAL CARCINOMA
     Dosage: DOSE: 2 GY
     Dates: start: 20050222, end: 20050408
  3. MONILAC [Concomitant]
  4. ALDACTONE [Concomitant]
     Dosage: DOSE: 1 TABLET
  5. ULCERMIN [Concomitant]
  6. ALOSITOL [Concomitant]
     Dosage: DOSE: 3 TABLETS
  7. ALLOID [Concomitant]
  8. MUCODYNE [Concomitant]
     Dosage: DOSE: 3 TABLETS
  9. NORMAL SALINE SOLUTION [Concomitant]
     Indication: OESOPHAGEAL CARCINOMA
     Route: 041
     Dates: start: 20050222, end: 20050405
  10. KYTRIL [Concomitant]
     Indication: OESOPHAGEAL CARCINOMA
     Route: 041
     Dates: start: 20050222, end: 20050405
  11. DECADRON [Concomitant]
     Indication: OESOPHAGEAL CARCINOMA
     Route: 041
     Dates: start: 20050222, end: 20050405

REACTIONS (10)
  - BLOOD PRESSURE FLUCTUATION [None]
  - CARDIAC ARREST [None]
  - GASTRIC ULCER [None]
  - HYPOALBUMINAEMIA [None]
  - INTERSTITIAL LUNG DISEASE [None]
  - PNEUMOMEDIASTINUM [None]
  - PULMONARY OEDEMA [None]
  - SHOCK [None]
  - SUBCUTANEOUS EMPHYSEMA [None]
  - URINE OUTPUT DECREASED [None]
